FAERS Safety Report 6694415-9 (Version None)
Quarter: 2010Q2

REPORT INFORMATION
  Report Type: 
  Country: None (occurrence: None)
  Receive Date: 20100423
  Receipt Date: 20100414
  Transmission Date: 20101027
  Serious: Yes (Other)
  Sender: FDA-Public Use
  Company Number: CA-JNJFOC-20100405490

PATIENT
  Sex: Male
  Weight: 71.3 kg

DRUGS (3)
  1. REMICADE [Suspect]
     Indication: COLITIS ULCERATIVE
     Dosage: ^WEEK 6^ (UNCLEAR)
     Route: 042
  2. REMICADE [Suspect]
     Dosage: WEEK2
     Route: 042
  3. REMICADE [Suspect]
     Dosage: WEEK 0
     Route: 042

REACTIONS (2)
  - GALLBLADDER DISORDER [None]
  - PAIN IN EXTREMITY [None]
